FAERS Safety Report 8625523-0 (Version None)
Quarter: 2012Q3

REPORT INFORMATION
  Report Type: 
  Country: None (occurrence: None)
  Receive Date: 20120827
  Receipt Date: 20120813
  Transmission Date: 20120928
  Serious: Yes (Death)
  Sender: FDA-Public Use
  Company Number: HU-PFIZER INC-2012208459

PATIENT
  Age: 29 Year
  Sex: Female

DRUGS (16)
  1. DOXORUBICIN HCL [Suspect]
     Indication: HODGKIN'S DISEASE
     Dosage: 8 CYCLES
     Route: 065
     Dates: start: 20060101
  2. ETOPOSIDE [Suspect]
     Indication: HODGKIN'S DISEASE
     Dosage: 2 CYCLES
     Route: 065
     Dates: start: 20060101
  3. RITUXIMAB [Suspect]
     Indication: HODGKIN'S DISEASE
     Dosage: UNK
     Route: 065
     Dates: start: 20070101
  4. DEXAMETHASONE SODIUM PHOSPHATE [Suspect]
     Indication: HODGKIN'S DISEASE
     Dosage: 2 CYCLES
     Route: 065
     Dates: start: 20060101
  5. ETOPOSIDE [Suspect]
     Indication: NON-HODGKIN'S LYMPHOMA STAGE IV
     Dosage: UNK
     Route: 065
     Dates: start: 20070101
  6. CARBOPLATIN [Suspect]
     Indication: HODGKIN'S DISEASE
     Dosage: 2 CYCLES
     Route: 065
     Dates: start: 20060101
  7. IFOSFAMIDE [Suspect]
     Indication: NON-HODGKIN'S LYMPHOMA STAGE IV
     Dosage: UNK
     Route: 065
     Dates: start: 20070101
  8. VINBLASTINE [Suspect]
     Indication: HODGKIN'S DISEASE
     Dosage: 8 CYCLES
     Route: 065
     Dates: start: 20060101
  9. GEMCITABINE HYDROCHLORIDE [Suspect]
     Indication: HODGKIN'S DISEASE
     Dosage: UNK
     Route: 065
     Dates: start: 20070101
  10. IFOSFAMIDE [Suspect]
     Indication: HODGKIN'S DISEASE
     Dosage: 2 CYCLES
     Route: 065
     Dates: start: 20060101
  11. CYTARABINE [Suspect]
     Indication: HODGKIN'S DISEASE
     Dosage: 2 CYCLES
     Route: 065
     Dates: start: 20060101
  12. VINORELBINE [Suspect]
     Indication: HODGKIN'S DISEASE
     Dosage: UNK
     Route: 065
     Dates: start: 20070101
  13. DOXORUBICIN HCL [Suspect]
     Indication: HODGKIN'S DISEASE
     Dosage: UNK
     Route: 065
  14. DACARBAZINE [Suspect]
     Indication: HODGKIN'S DISEASE
     Dosage: 8 CYCLES
     Route: 065
     Dates: start: 20060101
  15. CISPLATIN [Suspect]
     Indication: HODGKIN'S DISEASE
     Dosage: 2 CYCLES
     Route: 065
     Dates: start: 20060101
  16. BLEOMYCIN [Suspect]
     Indication: HODGKIN'S DISEASE
     Dosage: 8 CYCLES
     Route: 065
     Dates: start: 20060101

REACTIONS (2)
  - CYTOMEGALOVIRUS INFECTION [None]
  - HISTIOCYTOSIS HAEMATOPHAGIC [None]
